FAERS Safety Report 20751489 (Version 1)
Quarter: 2022Q2

REPORT INFORMATION
  Report Type: Spontaneous
  Country: FR (occurrence: FR)
  Receive Date: 20220426
  Receipt Date: 20220426
  Transmission Date: 20220720
  Serious: Yes (Other)
  Sender: FDA-Public Use
  Company Number: None

PATIENT
  Age: 45 Year
  Sex: Female

DRUGS (5)
  1. NEURONTIN [Suspect]
     Active Substance: GABAPENTIN
     Dosage: 1200 MG, 3X/DAY
     Route: 048
  2. OXYCONTIN [Suspect]
     Active Substance: OXYCODONE HYDROCHLORIDE
     Dosage: 50 MG, FREQ:12 H
     Route: 048
  3. OXYCODONE HYDROCHLORIDE [Suspect]
     Active Substance: OXYCODONE HYDROCHLORIDE
     Dosage: 540 MG, 1X/DAY
     Route: 048
  4. FENTANYL [Suspect]
     Active Substance: FENTANYL
     Dosage: 1 PATCH EVERY 3 DAYS (100 MICROGRAMS/HOUR (16.8 MG/42 CM?))
     Route: 062
  5. PECFENT [Suspect]
     Active Substance: FENTANYL CITRATE
     Dosage: UP TO 4800?G/ 24H
     Route: 045
     Dates: start: 2014

REACTIONS (2)
  - Dependence [Not Recovered/Not Resolved]
  - Drug abuse [Not Recovered/Not Resolved]

NARRATIVE: CASE EVENT DATE: 20140101
